FAERS Safety Report 22989141 (Version 2)
Quarter: 2023Q4

REPORT INFORMATION
  Report Type: Spontaneous
  Country: US (occurrence: US)
  Receive Date: 20230927
  Receipt Date: 20231004
  Transmission Date: 20240109
  Serious: Yes (Hospitalization, Other)
  Sender: FDA-Public Use
  Company Number: US-MLMSERVICE-20230911-4536966-1

PATIENT
  Age: 61 Year
  Sex: Female

DRUGS (5)
  1. FLUOXETINE [Interacting]
     Active Substance: FLUOXETINE HYDROCHLORIDE
     Indication: Generalised anxiety disorder
     Dosage: 60 MILLIGRAM, ONCE A DAY
     Route: 048
  2. FLUOXETINE [Interacting]
     Active Substance: FLUOXETINE HYDROCHLORIDE
     Indication: Major depression
  3. PHENTERMINE [Interacting]
     Active Substance: PHENTERMINE
     Indication: Obesity
     Dosage: 15 MILLIGRAM, ONCE A DAY
     Route: 048
  4. ARIPIPRAZOLE [Concomitant]
     Active Substance: ARIPIPRAZOLE
     Indication: Psychiatric symptom
     Dosage: 2 MILLIGRAM, ONCE A DAY
     Route: 048
  5. AMITRIPTYLINE [Concomitant]
     Active Substance: AMITRIPTYLINE
     Indication: Psychiatric symptom
     Dosage: 100 MILLIGRAM, ONCE A DAY(AT NIGHT)
     Route: 048

REACTIONS (3)
  - Substance-induced psychotic disorder [Recovered/Resolved]
  - Electrocardiogram QT prolonged [Unknown]
  - Drug interaction [Recovered/Resolved]
